FAERS Safety Report 20804496 (Version 3)
Quarter: 2022Q2

REPORT INFORMATION
  Report Type: Spontaneous
  Country: TW (occurrence: TW)
  Receive Date: 20220509
  Receipt Date: 20220603
  Transmission Date: 20220721
  Serious: Yes (Other)
  Sender: FDA-Public Use
  Company Number: TW-NOVARTISPH-NVSC2022TW104253

PATIENT
  Age: 71 Year
  Sex: Female
  Weight: 60 kg

DRUGS (1)
  1. BEOVU [Suspect]
     Active Substance: BROLUCIZUMAB-DBLL
     Indication: Polypoidal choroidal vasculopathy
     Dosage: 6 MG, QMO
     Route: 031
     Dates: start: 20220421, end: 20220421

REACTIONS (12)
  - Retinal vasculitis [Recovered/Resolved]
  - Eye pain [Unknown]
  - Ocular hyperaemia [Unknown]
  - Vision blurred [Unknown]
  - Iridocyclitis [Not Recovered/Not Resolved]
  - Anterior chamber cell [Not Recovered/Not Resolved]
  - Keratic precipitates [Not Recovered/Not Resolved]
  - Eye inflammation [Recovered/Resolved]
  - Visual acuity reduced [Recovering/Resolving]
  - Vitreal cells [Recovered/Resolved]
  - Ciliary body disorder [Recovered/Resolved]
  - Product use in unapproved indication [Unknown]

NARRATIVE: CASE EVENT DATE: 20220501
